FAERS Safety Report 23690240 (Version 1)
Quarter: 2024Q2

REPORT INFORMATION
  Report Type: Spontaneous
  Country: US (occurrence: US)
  Receive Date: 20240401
  Receipt Date: 20240401
  Transmission Date: 20240716
  Serious: Yes (Other)
  Sender: FDA-Public Use
  Company Number: US-GLENMARK PHARMACEUTICALS-2024GMK089593

PATIENT

DRUGS (2)
  1. GABAPENTIN [Suspect]
     Active Substance: GABAPENTIN
     Indication: Product used for unknown indication
     Dosage: UNK
     Route: 065
  2. TIZANIDINE [Suspect]
     Active Substance: TIZANIDINE
     Indication: Product used for unknown indication
     Dosage: UNK
     Route: 065

REACTIONS (11)
  - Sudden onset of sleep [Unknown]
  - Road traffic accident [Unknown]
  - Toxicity to various agents [Unknown]
  - Balance disorder [Unknown]
  - Pupillary light reflex tests abnormal [Unknown]
  - Binocular eye movement disorder [Unknown]
  - Blepharospasm [Unknown]
  - Eye movement disorder [Unknown]
  - Nystagmus [Unknown]
  - Impaired driving ability [Unknown]
  - Coordination abnormal [Unknown]
